FAERS Safety Report 6713332-9 (Version None)
Quarter: 2010Q2

REPORT INFORMATION
  Report Type: 
  Country: None (occurrence: None)
  Receive Date: 20100506
  Receipt Date: 20100422
  Transmission Date: 20101027
  Serious: Yes (Hospitalization)
  Sender: FDA-Public Use
  Company Number: DE-ROCHE-692024

PATIENT
  Sex: Female
  Weight: 92 kg

DRUGS (9)
  1. ROACTEMRA [Suspect]
     Indication: RHEUMATOID ARTHRITIS
     Route: 042
     Dates: start: 20100302, end: 20100302
  2. INDOMETHACIN SODIUM [Concomitant]
     Dosage: IN THE MORNING AND AT NIGHT
     Route: 048
  3. PANTOPRAZOL [Concomitant]
     Dosage: IN THE MORNING
     Route: 048
  4. TELMISARTAN [Concomitant]
     Route: 048
  5. ASPIRIN [Concomitant]
     Dosage: IN THE MORNING
     Route: 048
  6. PREDNISOLON [Concomitant]
     Dosage: 7.5 MG IN THE MORNING AND 2.5 MG AT NIGHT
  7. METAMIZOL [Concomitant]
     Route: 048
  8. CALCIMAGON-D3 [Concomitant]
     Dosage: IN THE MORNING AND AT NIGHT
     Route: 048
  9. FOSAMAX [Concomitant]
     Dosage: ON FRIDAY

REACTIONS (4)
  - ARTHRALGIA [None]
  - MYALGIA [None]
  - PAIN [None]
  - RHEUMATOID ARTHRITIS [None]
